FAERS Safety Report 5009813-9 (Version None)
Quarter: 2006Q2

REPORT INFORMATION
  Report Type: 
  Country: None (occurrence: None)
  Receive Date: 20060522
  Receipt Date: 20060522
  Transmission Date: 20061013
  Serious: No
  Sender: FDA-Public Use
  Company Number: None

PATIENT
  Age: 55 Year
  Sex: Female

DRUGS (1)
  1. LYRICA [Suspect]
     Indication: NEURITIS
     Dosage: 50 MG ONCE DAILY PO
     Route: 048
     Dates: start: 20060508, end: 20060512

REACTIONS (4)
  - BURNING SENSATION [None]
  - OEDEMA PERIPHERAL [None]
  - ORAL DISCOMFORT [None]
  - RENAL PAIN [None]
